FAERS Safety Report 14977010 (Version 1)
Quarter: 2018Q2

REPORT INFORMATION
  Report Type: Spontaneous
  Country: US (occurrence: US)
  Receive Date: 20180605
  Receipt Date: 20180605
  Transmission Date: 20180711
  Serious: Yes (Hospitalization)
  Sender: FDA-Public Use
  Company Number: US-ASTRAZENECA-2018SE73116

PATIENT
  Age: 49 Year
  Sex: Male

DRUGS (7)
  1. BYDUREON BCISE [Suspect]
     Active Substance: EXENATIDE
     Indication: TYPE 2 DIABETES MELLITUS
     Route: 065
     Dates: start: 20180413, end: 20180429
  2. TRAZODONE [Concomitant]
     Active Substance: TRAZODONE HYDROCHLORIDE
     Route: 065
  3. TRAMADOL. [Concomitant]
     Active Substance: TRAMADOL
     Route: 065
  4. GABAPENTIN. [Concomitant]
     Active Substance: GABAPENTIN
     Route: 065
  5. ROSUVASTATIN. [Suspect]
     Active Substance: ROSUVASTATIN
     Route: 048
  6. PIOGLITAZONE. [Concomitant]
     Active Substance: PIOGLITAZONE
     Route: 065
  7. CLONIDINE. [Concomitant]
     Active Substance: CLONIDINE
     Route: 065

REACTIONS (3)
  - Blood creatinine abnormal [Unknown]
  - Blood glucose abnormal [Unknown]
  - Pancreatitis acute [Recovered/Resolved]

NARRATIVE: CASE EVENT DATE: 20180413
